FAERS Safety Report 17224895 (Version 1)
Quarter: 2020Q1

REPORT INFORMATION
  Report Type: Report from Study
  Country: US (occurrence: US)
  Receive Date: 20200102
  Receipt Date: 20200102
  Transmission Date: 20200409
  Serious: Yes (Hospitalization, Other)
  Sender: FDA-Public Use
  Company Number: US-TAKEDA-2020TUS000121

PATIENT
  Sex: Male

DRUGS (2)
  1. VORTIOXETINE. [Suspect]
     Active Substance: VORTIOXETINE
     Dosage: 20 MILLIGRAM, QD
     Route: 048
     Dates: start: 20191230
  2. VORTIOXETINE. [Suspect]
     Active Substance: VORTIOXETINE
     Indication: DEPRESSION
     Dosage: 20 MILLIGRAM, QD
     Route: 048
     Dates: start: 2011, end: 20191220

REACTIONS (1)
  - Prostate cancer [Unknown]
